FAERS Safety Report 15639430 (Version 4)
Quarter: 2019Q1

REPORT INFORMATION
  Report Type: Spontaneous
  Country: US (occurrence: US)
  Receive Date: 20181120
  Receipt Date: 20190221
  Transmission Date: 20190417
  Serious: Yes (Other)
  Sender: FDA-Public Use
  Company Number: US-PFIZER INC-2018477175

PATIENT
  Age: 56 Year
  Sex: Female

DRUGS (9)
  1. NAPROXEN. [Concomitant]
     Active Substance: NAPROXEN
     Indication: ARTHRITIS
     Dosage: 500 MG, 1X/DAY
     Dates: start: 1995
  2. LOSARTAN POTASSIUM. [Concomitant]
     Active Substance: LOSARTAN POTASSIUM
     Indication: CARDIAC DISORDER
     Dosage: 25 MG, 1X/DAY
     Dates: start: 2005
  3. LIPITOR [Concomitant]
     Active Substance: ATORVASTATIN CALCIUM
     Dosage: UNK
     Dates: start: 2017
  4. XELJANZ XR [Suspect]
     Active Substance: TOFACITINIB CITRATE
     Indication: RHEUMATOID ARTHRITIS
     Dosage: 11 MG, DAILY
     Route: 048
     Dates: start: 2016
  5. CLOPIDOGREL [Concomitant]
     Active Substance: CLOPIDOGREL BISULFATE
     Dosage: UNK
     Dates: start: 2005
  6. XELJANZ XR [Suspect]
     Active Substance: TOFACITINIB CITRATE
     Indication: ARTHRITIS
  7. TRAMADOL. [Concomitant]
     Active Substance: TRAMADOL
     Indication: ARTHRALGIA
     Dosage: UNK  [50 MG 8 DAY]
     Dates: start: 2015
  8. ASPIRIN [ACETYLSALICYLIC ACID;ASCORBIC ACID] [Concomitant]
     Active Substance: ACETAMINOPHEN\ASCORBIC ACID
     Dosage: UNK
     Dates: start: 2005
  9. METOPROLOL. [Concomitant]
     Active Substance: METOPROLOL
     Indication: CARDIAC DISORDER
     Dosage: 50 MG, 2X/DAY
     Dates: start: 2005

REACTIONS (5)
  - Nephrolithiasis [Unknown]
  - Blood urine present [Unknown]
  - Urinary tract infection [Recovered/Resolved]
  - Lower respiratory tract infection [Recovered/Resolved]
  - Cystitis [Recovered/Resolved]
